FAERS Safety Report 6528908-1 (Version None)
Quarter: 2009Q4

REPORT INFORMATION
  Report Type: 
  Country: None (occurrence: None)
  Receive Date: 20091224
  Receipt Date: 20091208
  Transmission Date: 20100525
  Serious: Yes (Death, Other)
  Sender: FDA-Public Use
  Company Number: 2009BI040540

PATIENT
  Age: 71 Year
  Sex: Female

DRUGS (2)
  1. ZEVALIN [Suspect]
     Indication: NON-HODGKIN'S LYMPHOMA
     Dosage: 600 MBQ; 1X; IV
     Route: 042
     Dates: start: 20060929, end: 20060929
  2. RITUXIMAB [Concomitant]

REACTIONS (4)
  - COMA [None]
  - NEUTROPENIA [None]
  - SUBDURAL HAEMATOMA [None]
  - THROMBOCYTOPENIA [None]
